FAERS Safety Report 9239598 (Version 1)
Quarter: 2013Q2

REPORT INFORMATION
  Report Type: Spontaneous
  Country: US (occurrence: US)
  Receive Date: 20130418
  Receipt Date: 20130418
  Transmission Date: 20140414
  Serious: No
  Sender: FDA-Public Use
  Company Number: US-SANOFI-AVENTIS-2012SA046124

PATIENT
  Age: 34 Year
  Sex: Female

DRUGS (2)
  1. LOVENOX [Suspect]
     Indication: PREGNANCY
     Dosage: PRODUCT START DATE MENTIONED AS 8-10 WEEKS AGO.
     Route: 065
     Dates: start: 2012
  2. LOVENOX [Suspect]
     Indication: PREGNANCY
     Dosage: PRODUCT START DATE MENTIONED AS 8-10 WEEKS AGO.
     Route: 065
     Dates: start: 2012

REACTIONS (4)
  - Dysphonia [Not Recovered/Not Resolved]
  - Injection site nodule [Not Recovered/Not Resolved]
  - Injection site bruising [Unknown]
  - Exposure during pregnancy [Unknown]
